FAERS Safety Report 25094976 (Version 1)
Quarter: 2025Q1

REPORT INFORMATION
  Report Type: Spontaneous
  Country: US (occurrence: US)
  Receive Date: 20250319
  Receipt Date: 20250319
  Transmission Date: 20250409
  Serious: Yes (Other)
  Sender: BAYER HEALTHCARE PHARMACEUTICALS INC.
  Company Number: US-BAYER-2025A034219

PATIENT
  Age: 52 Year
  Sex: Male

DRUGS (3)
  1. KOVALTRY [Suspect]
     Active Substance: ANTIHEMOPHILIC FACTOR, HUMAN RECOMBINANT
  2. KOVALTRY [Suspect]
     Active Substance: ANTIHEMOPHILIC FACTOR, HUMAN RECOMBINANT
     Dates: start: 20250308, end: 20250308
  3. KOVALTRY [Suspect]
     Active Substance: ANTIHEMOPHILIC FACTOR, HUMAN RECOMBINANT
     Dates: start: 20250309, end: 20250309

REACTIONS (2)
  - Fall [None]
  - Lower limb fracture [None]

NARRATIVE: CASE EVENT DATE: 20250308
